FAERS Safety Report 24235750 (Version 2)
Quarter: 2024Q4

REPORT INFORMATION
  Report Type: Spontaneous
  Country: FI (occurrence: FI)
  Receive Date: 20240822
  Receipt Date: 20241104
  Transmission Date: 20250115
  Serious: Yes (Death, Other)
  Sender: MERCK
  Company Number: None

PATIENT
  Age: 64 Year
  Sex: Female

DRUGS (5)
  1. KEYTRUDA [Suspect]
     Active Substance: PEMBROLIZUMAB
     Indication: Triple negative breast cancer
     Dosage: 200MG EVERY 3 WEEKS X 4 AND 400MG X1 / 200MG EVERY 3 WEEKS X4 AND 400MG X1
     Route: 042
     Dates: start: 20240405, end: 20240703
  2. DOXORUBICIN [Concomitant]
     Active Substance: DOXORUBICIN
     Indication: Triple negative breast cancer
     Dosage: 120 MG
     Route: 042
     Dates: start: 20240405
  3. CYCLOPHOSPHAMIDE [Concomitant]
     Active Substance: CYCLOPHOSPHAMIDE
     Indication: Triple negative breast cancer
     Dosage: 1200 MG
     Route: 042
     Dates: start: 20240703, end: 20240703
  4. DOCETAXEL [Concomitant]
     Active Substance: DOCETAXEL
     Indication: Triple negative breast cancer
     Dosage: 150 MG
     Dates: start: 20230405, end: 20230405
  5. CARBOPLATIN [Concomitant]
     Active Substance: CARBOPLATIN
     Indication: Triple negative breast cancer
     Dosage: 540 MG
     Dates: start: 20240405, end: 20240610

REACTIONS (5)
  - Haemophagocytic lymphohistiocytosis [Fatal]
  - Renal injury [Fatal]
  - Haemolytic anaemia [Fatal]
  - Pancytopenia [Fatal]
  - Renal injury [Fatal]

NARRATIVE: CASE EVENT DATE: 20240701
